FAERS Safety Report 9577387 (Version 1)
Quarter: 2013Q4

REPORT INFORMATION
  Report Type: Spontaneous
  Country: US (occurrence: US)
  Receive Date: 20131001
  Receipt Date: 20131001
  Transmission Date: 20140711
  Serious: No
  Sender: FDA-Public Use
  Company Number: US-AMGEN-USASP2013007830

PATIENT
  Sex: Female

DRUGS (12)
  1. ENBREL [Suspect]
     Indication: RHEUMATOID ARTHRITIS
     Dosage: 50 MG, QWK
     Route: 058
  2. PROVENTIL                          /00139501/ [Concomitant]
     Dosage: 90 MUG, UNK
  3. OXYCODONE [Concomitant]
     Dosage: 5 MG, UNK
  4. METHOTREXATE [Concomitant]
     Dosage: 50 MG, UNK
  5. BIOTIN [Concomitant]
     Dosage: 10 MG, UNK
  6. CALCIUM [Concomitant]
     Dosage: 1200 UNK, UNK
  7. VITAMIN D                          /00107901/ [Concomitant]
     Dosage: 1000 UNIT, UNK
  8. ALEVE [Concomitant]
     Dosage: 220 MG, UNK
  9. COLOSTRUM [Concomitant]
     Dosage: 500 MG, UNK
  10. FOLIC ACID [Concomitant]
     Dosage: UNK
  11. PERCOCET                           /00446701/ [Concomitant]
     Dosage: 7.5 - 500
  12. APAP W/CODEINE [Concomitant]
     Dosage: 15-300 MG

REACTIONS (5)
  - Abdominal discomfort [Unknown]
  - Nausea [Unknown]
  - Vomiting [Unknown]
  - Dizziness [Unknown]
  - Injection site bruising [Unknown]
